FAERS Safety Report 9627099 (Version 2)
Quarter: 2013Q4

REPORT INFORMATION
  Report Type: Report from Study
  Country: DE (occurrence: DE)
  Receive Date: 20131016
  Receipt Date: 20131101
  Transmission Date: 20140711
  Serious: Yes (Other)
  Sender: FDA-Public Use
  Company Number: PHHY2013DE115404

PATIENT
  Sex: Female
  Weight: 58 kg

DRUGS (5)
  1. AFINITOR [Suspect]
     Indication: BREAST CANCER METASTATIC
     Dosage: 10 MG, QD
     Route: 048
     Dates: start: 20130717, end: 20130724
  2. AFINITOR [Suspect]
     Dosage: 5 MG, QD
     Route: 048
     Dates: start: 20130730, end: 20130814
  3. AFINITOR [Suspect]
     Route: 048
     Dates: end: 20131015
  4. EXEMESTANE [Concomitant]
     Indication: BREAST CANCER METASTATIC
     Dosage: 25 MG, QD
     Dates: start: 20130717
  5. ANTIHYPERTENSIVE DRUGS [Concomitant]

REACTIONS (3)
  - Cerebral ischaemia [Recovering/Resolving]
  - Headache [Recovering/Resolving]
  - Karnofsky scale worsened [Unknown]
